FAERS Safety Report 7822352-2 (Version None)
Quarter: 2011Q4

REPORT INFORMATION
  Report Type: 
  Country: None (occurrence: None)
  Receive Date: 20111018
  Receipt Date: 20111003
  Transmission Date: 20120403
  Serious: Yes (Death)
  Sender: FDA-Public Use
  Company Number: IT-WATSON-2011-16339

PATIENT
  Age: 58 Year
  Sex: Male

DRUGS (1)
  1. BACLOFEN [Suspect]
     Indication: MUSCLE SPASTICITY
     Dosage: UNKNOWN
     Route: 065

REACTIONS (3)
  - HYPOTENSION [None]
  - BRADYCARDIA [None]
  - CARDIAC ARREST [None]
